FAERS Safety Report 12328255 (Version 1)
Quarter: 2016Q2

REPORT INFORMATION
  Report Type: Spontaneous
  Country: US (occurrence: US)
  Receive Date: 20160503
  Receipt Date: 20160503
  Transmission Date: 20160815
  Serious: Yes (Death)
  Sender: FDA-Public Use
  Company Number: US-ASTELLAS-2016US004526

PATIENT
  Age: 71 Year
  Sex: Male

DRUGS (1)
  1. XTANDI [Suspect]
     Active Substance: ENZALUTAMIDE
     Indication: PROSTATE CANCER STAGE 0
     Route: 065
     Dates: start: 20160121

REACTIONS (4)
  - Diarrhoea [Recovering/Resolving]
  - Death [Fatal]
  - Oedema peripheral [Recovering/Resolving]
  - Fatigue [Not Recovered/Not Resolved]

NARRATIVE: CASE EVENT DATE: 201602
